FAERS Safety Report 4279636-7 (Version None)
Quarter: 2004Q1

REPORT INFORMATION
  Report Type: 
  Country: None (occurrence: None)
  Receive Date: 20040123
  Receipt Date: 20040114
  Transmission Date: 20041129
  Serious: Yes (Hospitalization)
  Sender: FDA-Public Use
  Company Number: 2003-06514

PATIENT
  Age: 49 Year
  Sex: Male

DRUGS (1)
  1. ADEFOVIR DIPIVOXIL KIT [Suspect]
     Indication: HEPATITIS B
     Dosage: 10 MG QD PO
     Route: 048
     Dates: start: 20030411

REACTIONS (2)
  - HEPATIC ENCEPHALOPATHY [None]
  - INFREQUENT BOWEL MOVEMENTS [None]
